APPROVED DRUG PRODUCT: CARBINOXAMINE MALEATE
Active Ingredient: CARBINOXAMINE MALEATE
Strength: 4MG/5ML
Dosage Form/Route: SOLUTION;ORAL
Application: A040814 | Product #001
Applicant: PH HEALTH LTD
Approved: Feb 26, 2008 | RLD: No | RS: No | Type: DISCN